FAERS Safety Report 21795987 (Version 1)
Quarter: 2022Q4

REPORT INFORMATION
  Report Type: Spontaneous
  Country: PT (occurrence: PT)
  Receive Date: 20221229
  Receipt Date: 20221229
  Transmission Date: 20230113
  Serious: Yes (Hospitalization)
  Sender: FDA-Public Use
  Company Number: PT-KERNPHARMA-202202187

PATIENT
  Age: 54 Year
  Sex: Female

DRUGS (3)
  1. EZETIMIBE [Suspect]
     Active Substance: EZETIMIBE
     Dosage: 10 MILLIGRAM
  2. ATORVASTATIN [Suspect]
     Active Substance: ATORVASTATIN
     Dosage: 80 MILLIGRAM
     Dates: start: 202007
  3. EDOXABAN TOSYLATE [Suspect]
     Active Substance: EDOXABAN TOSYLATE
     Dosage: 60 MILLIGRAM

REACTIONS (6)
  - Acute kidney injury [Recovering/Resolving]
  - Acute hepatic failure [Recovering/Resolving]
  - Myalgia [Recovering/Resolving]
  - Gait disturbance [Recovering/Resolving]
  - Rhabdomyolysis [Recovering/Resolving]
  - Gingival bleeding [Recovering/Resolving]

NARRATIVE: CASE EVENT DATE: 20200901
